FAERS Safety Report 20471277 (Version 1)
Quarter: 2022Q1

REPORT INFORMATION
  Report Type: Spontaneous
  Country: US (occurrence: US)
  Receive Date: 20220214
  Receipt Date: 20220214
  Transmission Date: 20220423
  Serious: No
  Sender: FDA-Public Use
  Company Number: US-TG THERAPEUTICS INC.-TGT002294

PATIENT
  Sex: Female
  Weight: 58.503 kg

DRUGS (6)
  1. UKONIQ [Suspect]
     Active Substance: UMBRALISIB TOSYLATE
     Indication: Product used for unknown indication
     Dosage: 800 MILLIGRAM
     Route: 048
  2. VENCLEXTA [Concomitant]
     Active Substance: VENETOCLAX
     Indication: Product used for unknown indication
     Dosage: 400 MILLIGRAM
     Route: 048
  3. VALACYCLOVIR HYDROCHLORIDE [Concomitant]
     Active Substance: VALACYCLOVIR HYDROCHLORIDE
     Indication: Product used for unknown indication
     Dosage: 500 MILLIGRAM
  4. BACTRIM DS [Concomitant]
     Active Substance: SULFAMETHOXAZOLE\TRIMETHOPRIM
     Indication: Product used for unknown indication
     Dosage: 800-160 MG
  5. BUDESONIDE [Concomitant]
     Active Substance: BUDESONIDE
     Indication: Product used for unknown indication
     Dosage: 9 MILLIGRAM
  6. CITRACAL PLUS D [Concomitant]
     Indication: Product used for unknown indication
     Dosage: 250-107-500 MG

REACTIONS (1)
  - Neutrophil count decreased [Unknown]
